FAERS Safety Report 5870902-8 (Version None)
Quarter: 2008Q3

REPORT INFORMATION
  Report Type: 
  Country: None (occurrence: None)
  Receive Date: 20080829
  Receipt Date: 20080813
  Transmission Date: 20090109
  Serious: Yes (Hospitalization)
  Sender: FDA-Public Use
  Company Number: CIP08001606

PATIENT
  Age: 56 Year
  Sex: Female

DRUGS (8)
  1. ACTONEL [Suspect]
     Indication: OSTEOPOROSIS
     Dosage: 35 MG ONCE WEEKLY, ORAL
     Route: 048
     Dates: start: 20040924, end: 20050414
  2. FOSAMAX [Suspect]
     Indication: OSTEOPOROSIS
     Dosage: 70 MG ONCE WEEKLY, ORAL
     Route: 048
     Dates: start: 20050414
  3. NEURONTIN [Concomitant]
  4. LOVASTATIN [Concomitant]
  5. BENADRYL [Concomitant]
  6. LUNESTA [Concomitant]
  7. IMITREX /01044801/ (SUMATRIPTAN) [Concomitant]
  8. XANAX [Concomitant]

REACTIONS (10)
  - ABSCESS [None]
  - ARTHRITIS [None]
  - CELLULITIS [None]
  - EAR PAIN [None]
  - MASTICATION DISORDER [None]
  - PAIN IN JAW [None]
  - PURULENT DISCHARGE [None]
  - TEMPOROMANDIBULAR JOINT SYNDROME [None]
  - TOOTH INFECTION [None]
  - TRISMUS [None]
